FAERS Safety Report 4303418-0 (Version None)
Quarter: 2004Q1

REPORT INFORMATION
  Report Type: 
  Country: None (occurrence: None)
  Receive Date: 20040223
  Receipt Date: 20040206
  Transmission Date: 20041129
  Serious: Yes (Hospitalization)
  Sender: FDA-Public Use
  Company Number: 2004IM000288

PATIENT
  Age: 47 Year
  Sex: Female

DRUGS (4)
  1. ADVAFERON (A643_INTERFERON ALFACON-1) [Suspect]
     Dosage: SUBCUTANEOUS
     Route: 058
  2. LEVOFLOXACIN [Concomitant]
  3. DICLOFENAC SODIUM [Concomitant]
  4. ETIZOLAM [Concomitant]

REACTIONS (1)
  - CONVULSION [None]
